FAERS Safety Report 6201012-8 (Version None)
Quarter: 2009Q2

REPORT INFORMATION
  Report Type: 
  Country: None (occurrence: None)
  Receive Date: 20090526
  Receipt Date: 20090512
  Transmission Date: 20091009
  Serious: Yes (Other)
  Sender: FDA-Public Use
  Company Number: US-RANBAXY-2009RR-24303

PATIENT
  Age: 15 Year
  Sex: Female

DRUGS (1)
  1. CIPROFLOXACIN [Suspect]
     Dosage: 7.5-10.0 G

REACTIONS (2)
  - OVERDOSE [None]
  - RENAL FAILURE ACUTE [None]
